FAERS Safety Report 10387812 (Version 2)
Quarter: 2014Q4

REPORT INFORMATION
  Report Type: Spontaneous
  Country: US (occurrence: US)
  Receive Date: 20140815
  Receipt Date: 20141022
  Transmission Date: 20150528
  Serious: Yes (Other)
  Sender: FDA-Public Use
  Company Number: US-TEVA-501642USA

PATIENT
  Sex: Male

DRUGS (1)
  1. COPAXONE [Suspect]
     Active Substance: GLATIRAMER ACETATE
     Dates: start: 2013, end: 2013

REACTIONS (1)
  - Blindness [Recovered/Resolved]

NARRATIVE: CASE EVENT DATE: 2013
